FAERS Safety Report 4354069-3 (Version None)
Quarter: 2004Q2

REPORT INFORMATION
  Report Type: 
  Country: None (occurrence: None)
  Receive Date: 20040506
  Receipt Date: 20040428
  Transmission Date: 20050107
  Serious: Yes (Other)
  Sender: FDA-Public Use
  Company Number: PHEH2004US04713

PATIENT
  Age: 51 Year
  Sex: Female

DRUGS (2)
  1. AREDIA [Suspect]
     Indication: OSTEOPOROSIS
     Dosage: 60MG/Q3MOS
     Route: 042
     Dates: start: 20000101
  2. AREDIA [Suspect]
     Dosage: 90 MG /QMON
     Route: 042
     Dates: start: 20000101

REACTIONS (10)
  - BONE LESION [None]
  - DIFFICULTY IN WALKING [None]
  - DIZZINESS [None]
  - FEELING ABNORMAL [None]
  - INFUSION SITE REACTION [None]
  - INTERVERTEBRAL DISC PROTRUSION [None]
  - LIPOMA [None]
  - NAUSEA [None]
  - SURGERY [None]
  - VOMITING [None]
